FAERS Safety Report 8116052-1 (Version None)
Quarter: 2011Q4

REPORT INFORMATION
  Report Type: 
  Country: None (occurrence: None)
  Receive Date: 20111227
  Receipt Date: 20111123
  Transmission Date: 20120403
  Serious: Yes (Other)
  Sender: FDA-Public Use
  Company Number: PHHY2011US54669

PATIENT
  Age: 25 Year
  Sex: Female

DRUGS (2)
  1. GILENYA [Suspect]
     Dosage: 0.5 MG, QD, ORAL
     Route: 048
     Dates: start: 20110615
  2. ZOLOFT [Concomitant]

REACTIONS (8)
  - SOMNOLENCE [None]
  - HEADACHE [None]
  - FATIGUE [None]
  - NAUSEA [None]
  - DEPRESSION [None]
  - DIZZINESS [None]
  - EYE PRURITUS [None]
  - ABDOMINAL DISCOMFORT [None]
